FAERS Safety Report 9196989 (Version 2)
Quarter: 2013Q2

REPORT INFORMATION
  Report Type: Report from Study
  Country: ES (occurrence: ES)
  Receive Date: 20130328
  Receipt Date: 20130517
  Transmission Date: 20140414
  Serious: Yes (Hospitalization)
  Sender: FDA-Public Use
  Company Number: ES-ROCHE-1204050

PATIENT
  Age: 59 Year
  Sex: Female

DRUGS (5)
  1. PERTUZUMAB [Suspect]
     Indication: BREAST CANCER
     Dosage: DATE OF LAST DOSE PRIOR TO SAE: 05/MAR/2013
     Route: 042
     Dates: start: 20130212
  2. TRASTUZUMAB [Suspect]
     Indication: BREAST CANCER
     Dosage: DATE OF LAST DOSE PRIOR TO SAE: 05/MAR/2013
     Route: 042
     Dates: start: 20130212
  3. DOCETAXEL [Suspect]
     Indication: BREAST CANCER
     Route: 042
     Dates: start: 20130212, end: 20130305
  4. SIMVASTATINA [Concomitant]
  5. BEMIPARINA SODICA [Concomitant]
     Route: 065
     Dates: start: 20130111, end: 20130416

REACTIONS (1)
  - Febrile neutropenia [Recovered/Resolved]
